FAERS Safety Report 8599691 (Version 11)
Quarter: 2013Q1

REPORT INFORMATION
  Report Type: Report from Study
  Country: US (occurrence: US)
  Receive Date: 20120605
  Receipt Date: 20130114
  Transmission Date: 20140127
  Serious: Yes (Other)
  Sender: FDA-Public Use
  Company Number: US-TEVA-340972USA

PATIENT
  Age: 24 Year
  Sex: Female

DRUGS (2)
  1. CLARAVIS [Suspect]
     Dosage: 51.4 MILLIGRAM DAILY; QD (M,T,R,F,SA) AND BID (W,SU)
     Route: 048
     Dates: start: 20120322, end: 20120513
  2. ORAL CONTRACEPTIVE NOS [Concomitant]

REACTIONS (1)
  - Pregnancy [Unknown]
